FAERS Safety Report 4381704-6 (Version None)
Quarter: 2004Q2

REPORT INFORMATION
  Report Type: 
  Country: None (occurrence: None)
  Receive Date: 20040621
  Receipt Date: 20040610
  Transmission Date: 20050107
  Serious: Yes (Other)
  Sender: FDA-Public Use
  Company Number: PHFR2004GB02429

PATIENT
  Sex: Male

DRUGS (9)
  1. TEGRETOL [Suspect]
  2. PHENYTOIN [Concomitant]
  3. RAMIPRIL [Concomitant]
  4. ASPIRIN [Concomitant]
  5. SIMVASTATIN [Concomitant]
  6. SLOW-K [Concomitant]
  7. SPIRONOLACTONE [Concomitant]
  8. PENICILLIN [Concomitant]
  9. FLUCLOXACILLIN [Concomitant]

REACTIONS (1)
  - PROTEIN-LOSING GASTROENTEROPATHY [None]
